FAERS Safety Report 9067800 (Version 1)
Quarter: 2013Q1

REPORT INFORMATION
  Report Type: Spontaneous
  Country: FR (occurrence: FR)
  Receive Date: 20130128
  Receipt Date: 20130128
  Transmission Date: 20140127
  Serious: Yes (Other)
  Sender: FDA-Public Use
  Company Number: PHHY2012FR107709

PATIENT
  Sex: Female

DRUGS (1)
  1. BENAZEPRIL [Suspect]
     Dosage: UNK

REACTIONS (3)
  - Oligohydramnios [Not Recovered/Not Resolved]
  - Premature labour [Unknown]
  - Exposure during pregnancy [Unknown]
